FAERS Safety Report 23660257 (Version 1)
Quarter: 2024Q1

REPORT INFORMATION
  Report Type: Spontaneous
  Country: CN (occurrence: CN)
  Receive Date: 20240321
  Receipt Date: 20240321
  Transmission Date: 20240410
  Serious: Yes (Other)
  Sender: FDA-Public Use
  Company Number: CN-009507513-2403CHN005331

PATIENT
  Age: 35 Year
  Sex: Female
  Weight: 60 kg

DRUGS (3)
  1. NOXAFIL [Suspect]
     Active Substance: POSACONAZOLE
     Indication: Pulmonary mucormycosis
     Dosage: 300 MG, BID, PERIPHERAL  IV DRIP
     Route: 041
     Dates: start: 20240301, end: 20240301
  2. NOXAFIL [Suspect]
     Active Substance: POSACONAZOLE
     Dosage: 300 MG, QD, PERIPHERAL  IV DRIP
     Route: 041
     Dates: start: 20240302, end: 20240303
  3. NOXAFIL [Suspect]
     Active Substance: POSACONAZOLE
     Dosage: DEEP VENOUS CATHETERIZATION
     Route: 041
     Dates: start: 20240304

REACTIONS (3)
  - Injection site phlebitis [Recovering/Resolving]
  - Incorrect route of product administration [Unknown]
  - Product use in unapproved indication [Unknown]

NARRATIVE: CASE EVENT DATE: 20240301
